FAERS Safety Report 7067544-8 (Version None)
Quarter: 2010Q4

REPORT INFORMATION
  Report Type: 
  Country: None (occurrence: None)
  Receive Date: 20101028
  Receipt Date: 20101014
  Transmission Date: 20110411
  Serious: Yes (Other)
  Sender: FDA-Public Use
  Company Number: JP-RANBAXY-2010RR-37560

PATIENT
  Age: 51 Year
  Sex: Male

DRUGS (13)
  1. RISPERIDONE [Suspect]
     Indication: SCHIZOPHRENIA
     Dosage: 2 MG, UNK
  2. INSULIN [Concomitant]
     Indication: TYPE 2 DIABETES MELLITUS
     Dosage: 62 U/DAY
  3. INSULIN [Concomitant]
     Dosage: 18 U/DAY
  4. CANDESARTAN CILEXETIL [Concomitant]
     Indication: HYPERTENSION
  5. TELMISARTAN [Concomitant]
     Indication: HYPERTENSION
     Dosage: 20 MG, UNK
  6. CLONAZEPAM [Concomitant]
     Indication: SCHIZOPHRENIA
     Dosage: 9 MG, UNK
  7. BRONAZEPAM [Concomitant]
     Indication: SCHIZOPHRENIA
     Dosage: 3 MG, UNK
  8. LEVOMEPROMAZINE [Concomitant]
     Indication: SCHIZOPHRENIA
     Dosage: 25 MG, UNK
  9. VALPROATE SODIUM [Concomitant]
     Dosage: 300 MG, UNK
  10. PIPERIDINE [Concomitant]
     Indication: PARKINSONISM
  11. FELODIPINE [Concomitant]
     Dosage: 5 MG, UNK
  12. FLUVASTATIN [Concomitant]
     Dosage: 30 MG, UNK
  13. METFORMIN [Concomitant]
     Dosage: 750 MG, UNK

REACTIONS (1)
  - METABOLIC DISORDER [None]
